FAERS Safety Report 9664061 (Version 1)
Quarter: 2013Q4

REPORT INFORMATION
  Report Type: Spontaneous
  Country: DE (occurrence: DE)
  Receive Date: 20131101
  Receipt Date: 20131101
  Transmission Date: 20140711
  Serious: Yes (Other)
  Sender: FDA-Public Use
  Company Number: DE-TEVA-440541GER

PATIENT
  Sex: Female

DRUGS (1)
  1. METFORMIN-RATIOPHARM 1000 MG FILMTABLETTEN [Suspect]

REACTIONS (2)
  - Hypoglycaemic coma [Not Recovered/Not Resolved]
  - Organ failure [Not Recovered/Not Resolved]
